FAERS Safety Report 9280966 (Version 3)
Quarter: 2013Q3

REPORT INFORMATION
  Report Type: Report from Study
  Country: KR (occurrence: KR)
  Receive Date: 20130509
  Receipt Date: 20130827
  Transmission Date: 20140515
  Serious: Yes (Hospitalization, Other)
  Sender: FDA-Public Use
  Company Number: KR-ABBOTT-13P-090-1085971-00

PATIENT
  Age: 1 Month
  Sex: Female
  Weight: 4.3 kg

DRUGS (71)
  1. SYNAGIS [Suspect]
     Indication: PRODUCT USED FOR UNKNOWN INDICATION
     Route: 030
     Dates: start: 20121005, end: 20121005
  2. SYNAGIS [Suspect]
     Route: 030
     Dates: start: 20121105, end: 20121105
  3. SYNAGIS [Suspect]
     Route: 030
     Dates: start: 20121205, end: 20121205
  4. SYNAGIS [Suspect]
     Route: 030
     Dates: start: 20130107, end: 20130107
  5. SYNAGIS [Suspect]
     Route: 030
     Dates: start: 20130212
  6. VANCOCIN CP [Concomitant]
     Indication: NECROTISING COLITIS
     Route: 042
     Dates: start: 20121001, end: 20121005
  7. VANCOCIN CP [Concomitant]
     Route: 042
     Dates: start: 20120920, end: 20120927
  8. AMIKIN [Concomitant]
     Indication: NECROTISING COLITIS
     Route: 042
     Dates: start: 20121101, end: 20121105
  9. AMIKIN [Concomitant]
     Route: 042
     Dates: start: 20121114, end: 20121115
  10. AMIKIN [Concomitant]
     Route: 042
     Dates: start: 20121116, end: 20121116
  11. AMIKIN [Concomitant]
     Route: 042
     Dates: start: 20120914, end: 20120925
  12. AMIKIN [Concomitant]
     Route: 042
     Dates: start: 20120926, end: 20121004
  13. FENTANYL CITRATE [Concomitant]
     Indication: SEDATION
     Route: 042
     Dates: start: 20121012, end: 20121021
  14. FENTANYL CITRATE [Concomitant]
     Indication: MECHANICAL VENTILATION
     Route: 042
     Dates: start: 20120906, end: 20120921
  15. DIFLUCAN [Concomitant]
     Indication: ANTIBIOTIC PROPHYLAXIS
     Route: 042
     Dates: start: 20120910, end: 20120923
  16. DIFLUCAN [Concomitant]
     Dosage: 2.4 MG DAILY
  17. DIFLUCAN [Concomitant]
     Dosage: 2.6 MG DAILY
     Dates: start: 20121001, end: 20121003
  18. DIFLUCAN [Concomitant]
     Dosage: 2.7 MG DAILY
     Dates: start: 20121004, end: 20121007
  19. DIFLUCAN [Concomitant]
     Dosage: 2.9 MG DAILY
     Dates: start: 20121008, end: 20121010
  20. DIFLUCAN [Concomitant]
     Dosage: 3 MG DAILY
     Dates: start: 20121011, end: 20121021
  21. DIFLUCAN [Concomitant]
     Dosage: 4.1 MG DAILY
     Dates: start: 20121022, end: 20121024
  22. DIFLUCAN [Concomitant]
     Dosage: 4 MG DAILY
     Dates: start: 20121025, end: 20121031
  23. DIFLUCAN [Concomitant]
     Dosage: 3.8 MG DAILY
     Dates: start: 20121101, end: 20121104
  24. DIFLUCAN [Concomitant]
     Dosage: 4 MG DAILY
     Dates: start: 20121105, end: 20121111
  25. DIFLUCAN [Concomitant]
     Dosage: 4.7 MG DAILY
     Dates: start: 20121112, end: 20121114
  26. DIFLUCAN [Concomitant]
     Dosage: 5.1 MG DAILY
     Dates: start: 20121115, end: 20121118
  27. DIFLUCAN [Concomitant]
     Dosage: 4.8 MG DAILY
     Dates: start: 20121119, end: 20121119
  28. NEOCAF INJ [Concomitant]
     Indication: APNOEA NEONATAL
     Route: 042
     Dates: start: 20121002, end: 20121119
  29. NEOCAF INJ [Concomitant]
     Indication: BRONCHOPULMONARY DYSPLASIA
  30. MACPERAN [Concomitant]
     Indication: DYSPEPSIA
     Route: 042
     Dates: start: 20121003, end: 20121110
  31. MACPERAN [Concomitant]
     Indication: PROPHYLAXIS
  32. ALDACTONE [Concomitant]
     Indication: PATENT DUCTUS ARTERIOSUS
     Route: 048
     Dates: start: 20121006, end: 20121006
  33. ALDACTONE [Concomitant]
     Route: 048
     Dates: start: 20121012, end: 20121012
  34. DICHLOZID [Concomitant]
     Indication: PATENT DUCTUS ARTERIOSUS
     Route: 048
     Dates: start: 20121006, end: 20121007
  35. DICHLOZID [Concomitant]
     Route: 048
     Dates: start: 20121012, end: 20121012
  36. PEDEA [Concomitant]
     Indication: PATENT DUCTUS ARTERIOSUS
     Route: 042
     Dates: start: 20121007, end: 20121007
  37. PEDEA [Concomitant]
     Route: 042
     Dates: start: 20121008, end: 20121008
  38. PEDEA [Concomitant]
     Route: 042
     Dates: start: 20121009, end: 20121009
  39. LASIX [Concomitant]
     Indication: PULMONARY OEDEMA
     Route: 042
     Dates: start: 20121007, end: 20121118
  40. LASIX [Concomitant]
     Indication: PROPHYLAXIS
  41. TAPRAM [Concomitant]
     Indication: RESPIRATORY DISORDER
     Route: 042
     Dates: start: 20121010, end: 20121012
  42. TAPRAM [Concomitant]
     Indication: BRONCHOPULMONARY DYSPLASIA
  43. FUNGIZONE [Concomitant]
     Indication: MENINGITIS
     Route: 042
     Dates: start: 20121013, end: 20121018
  44. GLOBULIN S [Concomitant]
     Indication: MENINGITIS
     Route: 042
     Dates: start: 20121013, end: 20121019
  45. MEROPEN [Concomitant]
     Indication: MENINGITIS
     Route: 042
     Dates: start: 20121013, end: 20121025
  46. CEFOTAXIME [Concomitant]
     Indication: ANTIBIOTIC PROPHYLAXIS
     Dosage: 133 MG DAILY
     Route: 042
     Dates: start: 20121109, end: 20121109
  47. CEFOTAXIME [Concomitant]
     Dosage: 212.5 MG DAILY
     Dates: start: 20121110, end: 20121110
  48. CEFOTAXIME [Concomitant]
     Dosage: 213 MG DAILY
     Dates: start: 20121111, end: 20121111
  49. CEFOTAXIME [Concomitant]
     Dosage: 231.5 MG DAILY
     Dates: start: 20121112, end: 20121112
  50. CEFOTAXIME [Concomitant]
     Dosage: 229.5 MG DAILY
     Dates: start: 20121113, end: 20121113
  51. CEFOTAXIME [Concomitant]
     Dosage: 80.5 MG DAILY
     Dates: start: 20121114, end: 20121114
  52. FOLIC ACID [Concomitant]
     Indication: FOLATE DEFICIENCY
     Route: 048
     Dates: start: 20121121, end: 20130123
  53. FOLIC ACID [Concomitant]
     Indication: PROPHYLAXIS
  54. OUROPEROL SOFT CAP [Concomitant]
     Indication: VITAMIN E DEFICIENCY
     Route: 048
     Dates: start: 20121121, end: 20130123
  55. OUROPEROL SOFT CAP [Concomitant]
     Indication: PROPHYLAXIS
  56. MACPERAN [Concomitant]
     Indication: DYSPEPSIA
     Route: 048
     Dates: start: 20130104, end: 20130124
  57. MACPERAN [Concomitant]
     Indication: PROPHYLAXIS
  58. LASIX [Concomitant]
     Indication: PULMONARY OEDEMA
     Route: 048
     Dates: start: 20130111, end: 20130116
  59. LASIX [Concomitant]
     Indication: PROPHYLAXIS
  60. TORAMICIN [Concomitant]
     Indication: ANTIBIOTIC PROPHYLAXIS
     Route: 047
     Dates: start: 20130118, end: 20130123
  61. TORAMICIN [Concomitant]
     Indication: EYE LASER SURGERY
  62. HEPAVAX-GENE TF [Concomitant]
     Indication: HEPATITIS B
     Route: 030
     Dates: start: 20130131, end: 20130131
  63. HEPAVAX-GENE TF [Concomitant]
     Indication: PROPHYLAXIS
  64. BCG VACCINE, FREEZE-DRIED [Concomitant]
     Indication: ANTIBIOTIC PROPHYLAXIS
     Dates: start: 20130131, end: 20130131
  65. POCRAL [Concomitant]
     Indication: CONVULSION PROPHYLAXIS
     Route: 048
     Dates: start: 20130221, end: 20130221
  66. POCRAL [Concomitant]
     Route: 048
     Dates: start: 20130223, end: 20130223
  67. TRIAXONE [Concomitant]
     Indication: ANTIBIOTIC PROPHYLAXIS
     Route: 042
     Dates: start: 20130225, end: 20130226
  68. KEROMIN [Concomitant]
     Indication: PAIN
     Route: 042
     Dates: start: 20130225, end: 20130225
  69. KEROMIN [Concomitant]
     Indication: VENTRICULO-PERITONEAL SHUNT
     Route: 042
     Dates: start: 20130226, end: 20130226
  70. TYLENOL CHILDRENS [Concomitant]
     Indication: PAIN
     Route: 048
     Dates: start: 20130225, end: 20130228
  71. TYLENOL CHILDRENS [Concomitant]
     Indication: VENTRICULO-PERITONEAL SHUNT

REACTIONS (7)
  - Hydrocephalus [Recovered/Resolved]
  - Clonic convulsion [Recovered/Resolved]
  - Retinopathy of prematurity [Recovered/Resolved]
  - Electrolyte imbalance [Recovered/Resolved]
  - Hyperkalaemia [Recovered/Resolved]
  - Cerebral ventricle dilatation [Recovered/Resolved]
  - Retinopathy of prematurity [Not Recovered/Not Resolved]
